FAERS Safety Report 25336471 (Version 1)
Quarter: 2025Q2

REPORT INFORMATION
  Report Type: Spontaneous
  Country: US (occurrence: None)
  Receive Date: 20250519
  Receipt Date: 20250519
  Transmission Date: 20250717
  Serious: Yes (Death)
  Sender: FDA-CTU
  Company Number: None

PATIENT
  Sex: Female

DRUGS (6)
  1. MYOBLOC [Suspect]
     Active Substance: RIMABOTULINUMTOXINB
     Indication: Product used for unknown indication
     Route: 030
     Dates: start: 20220701
  2. CRESTOR [Concomitant]
     Active Substance: ROSUVASTATIN CALCIUM
  3. DOVONEX [Concomitant]
     Active Substance: CALCIPOTRIENE
  4. GLUCOSAMINE [Concomitant]
     Active Substance: GLUCOSAMINE
  5. MULT VITAMIN [Concomitant]
  6. PREMARIN VAG CRE [Concomitant]

REACTIONS (1)
  - Death [None]
